APPROVED DRUG PRODUCT: ESOMEPRAZOLE MAGNESIUM
Active Ingredient: ESOMEPRAZOLE MAGNESIUM
Strength: EQ 20MG BASE
Dosage Form/Route: TABLET, ORALLY DISINTEGRATING, DELAYED RELEASE;ORAL
Application: N214278 | Product #001
Applicant: DEXCEL PHARMA TECHNOLOGIES LTD
Approved: Oct 20, 2020 | RLD: Yes | RS: No | Type: DISCN

PATENTS:
Patent 10076494 | Expires: Dec 8, 2036
Patent 10835488 | Expires: Dec 8, 2036